FAERS Safety Report 5181029-5 (Version None)
Quarter: 2006Q4

REPORT INFORMATION
  Report Type: 
  Country: None (occurrence: None)
  Receive Date: 20061220
  Receipt Date: 20060307
  Transmission Date: 20070319
  Serious: Yes (Hospitalization, Other)
  Sender: FDA-Public Use
  Company Number: US-ELI_LILLY_AND_COMPANY-US200606000621

PATIENT
  Age: 36 Year
  Sex: Male
  Weight: 68.027 kg

DRUGS (4)
  1. ZYPREXA [Suspect]
     Dosage: 30 MG, UNK
     Dates: start: 19970101, end: 20040101
  2. QUETIAPINE FUMARATE [Concomitant]
     Dates: start: 20010101, end: 20050101
  3. TRAZODONE HCL [Concomitant]
     Dates: start: 20020101, end: 20050101
  4. PROPRANOLOL [Concomitant]
     Dates: start: 20010101, end: 20050101

REACTIONS (17)
  - ACETONAEMIA [None]
  - BLOOD CHOLESTEROL ABNORMAL [None]
  - BLOOD TRIGLYCERIDES INCREASED [None]
  - CEREBROVASCULAR ACCIDENT [None]
  - DIABETES MELLITUS [None]
  - DIABETIC COMA [None]
  - GLUCOSE TOLERANCE IMPAIRED [None]
  - HYPERTENSION [None]
  - HYPOGLYCAEMIA [None]
  - KETONURIA [None]
  - METABOLIC DISORDER [None]
  - MITRAL VALVE PROLAPSE [None]
  - MYOCARDIAL INFARCTION [None]
  - POLYURIA [None]
  - PRESCRIBED OVERDOSE [None]
  - THROMBOSIS [None]
  - VISION BLURRED [None]
